FAERS Safety Report 13471357 (Version 2)
Quarter: 2017Q2

REPORT INFORMATION
  Report Type: Report from Study
  Country: KR (occurrence: KR)
  Receive Date: 20170424
  Receipt Date: 20170501
  Transmission Date: 20170830
  Serious: Yes (Death, Hospitalization)
  Sender: FDA-Public Use
  Company Number: PHHY2014KR178090

PATIENT
  Age: 68 Year
  Sex: Male
  Weight: 80.75 kg

DRUGS (6)
  1. VOTRIENT [Suspect]
     Active Substance: PAZOPANIB HYDROCHLORIDE
     Indication: RENAL CELL CARCINOMA
     Dosage: 800 MG, QD
     Route: 048
     Dates: start: 20140827
  2. CELEBREX [Concomitant]
     Active Substance: CELECOXIB
     Indication: PAIN
     Dosage: 200 MG, QD
     Route: 048
     Dates: start: 20140927, end: 20140928
  3. TARGIN [Concomitant]
     Active Substance: NALOXONE HYDROCHLORIDE\OXYCODONE HYDROCHLORIDE
     Indication: PAIN
     Dosage: 40 MG, QD
     Route: 048
     Dates: start: 20140927, end: 20141014
  4. IRCODON [Concomitant]
     Indication: PAIN
     Dosage: 10 MG, BID
     Route: 048
     Dates: start: 20140927, end: 20140927
  5. IRCODON [Concomitant]
     Dosage: 10 MG, TID
     Route: 048
     Dates: start: 20140928, end: 20141025
  6. CURAN [Concomitant]
     Active Substance: RANITIDINE HYDROCHLORIDE
     Indication: GASTRITIS PROPHYLAXIS
     Dosage: 150 MG, QD
     Route: 048
     Dates: start: 20140927, end: 20141020

REACTIONS (6)
  - Leukocytosis [Recovering/Resolving]
  - Hypophagia [Recovering/Resolving]
  - Asthenia [Fatal]
  - Renal cell carcinoma [Fatal]
  - Malignant neoplasm progression [Fatal]
  - C-reactive protein increased [Recovering/Resolving]

NARRATIVE: CASE EVENT DATE: 20140927
